FAERS Safety Report 8012586-9 (Version None)
Quarter: 2011Q4

REPORT INFORMATION
  Report Type: 
  Country: None (occurrence: None)
  Receive Date: 20111223
  Receipt Date: 20111223
  Transmission Date: 20120403
  Serious: Yes (Disabling)
  Sender: FDA-Public Use
  Company Number: None

PATIENT
  Sex: Male
  Weight: 63.5036 kg

DRUGS (3)
  1. BOTOX [Suspect]
  2. PAROXETINE [Suspect]
     Indication: DEPRESSION
     Dosage: 30 MG 1 PER DAY PILL
     Dates: start: 20070101
  3. PAROXETINE [Suspect]
     Indication: ANXIETY
     Dosage: 30 MG 1 PER DAY PILL
     Dates: start: 20070101

REACTIONS (1)
  - TORTICOLLIS [None]
